FAERS Safety Report 15341596 (Version 2)
Quarter: 2018Q3

REPORT INFORMATION
  Report Type: Spontaneous
  Country: DE (occurrence: DE)
  Receive Date: 20180901
  Receipt Date: 20180917
  Transmission Date: 20181010
  Serious: Yes (Congenital Anomaly, Other)
  Sender: FDA-Public Use
  Company Number: DE-AUROBINDO-AUR-APL-2018-043749

PATIENT
  Sex: Male
  Weight: .39 kg

DRUGS (7)
  1. OMEPRAZOLE. [Suspect]
     Active Substance: OMEPRAZOLE
     Indication: FOETAL EXPOSURE DURING PREGNANCY
     Route: 064
  2. DICLOFENAC [Suspect]
     Active Substance: DICLOFENAC
     Indication: PAIN
     Dosage: UNK (FROM 0 TO 27 GESTATIONAL WEEK + 1 PRO RE NATA)
     Route: 064
  3. PARACETAMOL [Suspect]
     Active Substance: ACETAMINOPHEN
     Indication: FOETAL EXPOSURE DURING PREGNANCY
     Dosage: UNK (FROM 0 TO 4 GESTATIONAL WEEK)
     Route: 064
  4. LEVOTHYROXINE. [Suspect]
     Active Substance: LEVOTHYROXINE
     Indication: FOETAL EXPOSURE DURING PREGNANCY
     Dosage: UNK (FROM 0 TO 27 GESTATIONAL WEEK)
     Route: 064
  5. IBUPROFEN. [Suspect]
     Active Substance: IBUPROFEN
     Indication: FOETAL EXPOSURE DURING PREGNANCY
     Dosage: MATERNAL DOSE:FROM 0 TO 27 GESTATIONAL WEEK ()
     Route: 064
  6. DICLOFENAC [Suspect]
     Active Substance: DICLOFENAC
     Indication: FOETAL EXPOSURE DURING PREGNANCY
  7. LYNESTRENOL [Suspect]
     Active Substance: LYNESTRENOL
     Indication: FOETAL EXPOSURE DURING PREGNANCY
     Dosage: UNK (FROM 0 TO 4 GESTATIONAL WEEK)
     Route: 064

REACTIONS (7)
  - Cerebral atrophy congenital [Unknown]
  - Macrocephaly [Unknown]
  - Atrial septal defect [Unknown]
  - Foetal exposure during pregnancy [Unknown]
  - Pyloric stenosis [Unknown]
  - Pupils unequal [Unknown]
  - Splenomegaly [Unknown]
